FAERS Safety Report 9921795 (Version 4)
Quarter: 2014Q1

REPORT INFORMATION
  Report Type: Spontaneous
  Country: JP (occurrence: JP)
  Receive Date: 20140225
  Receipt Date: 20140327
  Transmission Date: 20141002
  Serious: Yes (Death, Life-Threatening, Hospitalization, Other)
  Sender: FDA-Public Use
  Company Number: JP-PFIZER INC-2014050352

PATIENT
  Age: 83 Year
  Sex: Female

DRUGS (19)
  1. LYRICA [Suspect]
     Indication: NEUROPATHY PERIPHERAL
     Dosage: 25 MG, DAILY
     Route: 048
     Dates: start: 20140108, end: 20140115
  2. LYRICA [Suspect]
     Indication: SCIATICA
     Dosage: 50 MG, DAILY
     Route: 048
     Dates: start: 20140124, end: 20140130
  3. LYRICA [Suspect]
     Indication: LUMBAR SPINAL STENOSIS
     Dosage: 75 MG, DAILY
     Route: 048
     Dates: start: 20140131
  4. OPALMON [Concomitant]
     Route: 048
  5. TAKEPRON [Concomitant]
     Route: 048
  6. MARZULENE [Concomitant]
     Route: 048
  7. SELBEX [Concomitant]
     Route: 048
  8. BAYASPIRIN [Concomitant]
     Route: 048
  9. CALSLOT [Concomitant]
     Route: 048
  10. NITOROL R [Concomitant]
     Route: 048
  11. TEGRETOL [Concomitant]
     Route: 048
  12. RIZE [Concomitant]
     Route: 048
  13. LIPITOR [Concomitant]
     Route: 048
  14. TOUGHMAC E [Concomitant]
  15. LAC B N [Concomitant]
  16. THIATON [Concomitant]
  17. SINGULAIR [Concomitant]
  18. MUCODYNE [Concomitant]
  19. NASONEX [Concomitant]
     Route: 045

REACTIONS (8)
  - Accidental overdose [Fatal]
  - Pneumonia aspiration [Fatal]
  - Disseminated intravascular coagulation [Fatal]
  - Depressed level of consciousness [Recovering/Resolving]
  - Multi-organ failure [Unknown]
  - Sepsis [Unknown]
  - Vomiting [Unknown]
  - Dyskinesia [Unknown]
